FAERS Safety Report 9276785 (Version 1)
Quarter: 2013Q2

REPORT INFORMATION
  Report Type: Spontaneous
  Country: US (occurrence: US)
  Receive Date: 20130507
  Receipt Date: 20130507
  Transmission Date: 20140414
  Serious: No
  Sender: FDA-Public Use
  Company Number: US-ASTRAZENECA-2013SE25225

PATIENT
  Age: 47 Year
  Sex: Male
  Weight: 77.1 kg

DRUGS (3)
  1. SEROQUEL XR [Suspect]
     Indication: BIPOLAR II DISORDER
     Route: 048
     Dates: start: 201206
  2. SEROQUEL XR [Suspect]
     Indication: BIPOLAR II DISORDER
     Route: 048
  3. LAMOTRIGINE [Concomitant]
     Indication: DEPRESSION
     Dates: start: 201208

REACTIONS (4)
  - Anxiety [Unknown]
  - Somnolence [Unknown]
  - Intentional drug misuse [Unknown]
  - Drug dose omission [Unknown]
